FAERS Safety Report 19651056 (Version 4)
Quarter: 2021Q4

REPORT INFORMATION
  Report Type: Spontaneous
  Country: US (occurrence: US)
  Receive Date: 20210803
  Receipt Date: 20211008
  Transmission Date: 20220303
  Serious: Yes (Hospitalization, Other)
  Sender: FDA-Public Use
  Company Number: US-BOEHRINGERINGELHEIM-2021-BI-119090

PATIENT
  Age: 49 Year
  Sex: Male

DRUGS (20)
  1. JARDIANCE [Suspect]
     Active Substance: EMPAGLIFLOZIN
     Indication: Type 2 diabetes mellitus
     Dosage: EVERY MORNING
     Route: 048
     Dates: start: 20170905
  2. CHLORTHALIDONE [Concomitant]
     Active Substance: CHLORTHALIDONE
     Indication: Product used for unknown indication
     Route: 048
     Dates: start: 20200708
  3. ACETAMINOPHEN\HYDROCODONE [Concomitant]
     Active Substance: ACETAMINOPHEN\HYDROCODONE
     Indication: Pain
     Dosage: HYDROCODONE 5 MG - ACETAMINOPHEN 325 MG?TAKE 1 TABLET BY ORAL ROUTE EVERY 6 HOURS AS NEEDED
     Route: 048
     Dates: start: 20200727
  4. ACETAMINOPHEN\HYDROCODONE [Concomitant]
     Active Substance: ACETAMINOPHEN\HYDROCODONE
     Dosage: TAKE 1 TABLET BY ORAL ROUTE EVERY 6 HOURS AS NEEDED
     Route: 048
     Dates: start: 20200915
  5. ACETAMINOPHEN\HYDROCODONE [Concomitant]
     Active Substance: ACETAMINOPHEN\HYDROCODONE
     Dosage: HYDROCODONE  ACETAMINOPHEN 7.5 MG, 325 MG?TAKE 1 TABLET BY ORAL ROUTE EVERY 4 HOURS AS NEEDED
     Route: 048
  6. LEVOFLOXACIN [Concomitant]
     Active Substance: LEVOFLOXACIN
     Indication: Product used for unknown indication
     Route: 048
     Dates: start: 20200708
  7. GLUCOPHAGE [Concomitant]
     Active Substance: METFORMIN HYDROCHLORIDE
     Indication: Product used for unknown indication
     Dates: start: 20200708
  8. TRAMADOL HYDROCHLORIDE [Concomitant]
     Active Substance: TRAMADOL HYDROCHLORIDE
     Indication: Pain
     Dosage: 37.5 MG- 325 MG EVERY 12 HOURS AS NEEDED
     Route: 048
     Dates: start: 20200708
  9. VERAPAMIL HYDROCHLORIDE [Concomitant]
     Active Substance: VERAPAMIL HYDROCHLORIDE
     Indication: Product used for unknown indication
     Dosage: 180 MG/24 HOURS ORAL CAPSULE EXTENDED RELEASE 2 CAPSULES ORAL EVERYDAY
     Route: 048
     Dates: start: 20200708
  10. LISINOPRIL [Concomitant]
     Active Substance: LISINOPRIL
     Indication: Product used for unknown indication
     Route: 048
     Dates: start: 20200708
  11. LIPITOR [Concomitant]
     Active Substance: ATORVASTATIN CALCIUM
     Indication: Product used for unknown indication
     Route: 048
  12. SOLIQUA 100/33 [Concomitant]
     Active Substance: INSULIN GLARGINE\LIXISENATIDE
     Indication: Product used for unknown indication
     Dosage: (100/33) 100 UNIT?33 MCG/ML INJECTION
     Route: 058
  13. SOLIQUA 100/33 [Concomitant]
     Active Substance: INSULIN GLARGINE\LIXISENATIDE
     Dosage: (SOLIQUA 100/3 SUBCUTANEOUS SOLUTION) INJECT 60 UNITS UNDER THE SKIN NIGHTLY
     Route: 058
  14. SOLIQUA 100/33 [Concomitant]
     Active Substance: INSULIN GLARGINE\LIXISENATIDE
     Dosage: (SOLIQUA 100/3 SUBCUTANEOUS SOLUTION) INJECT 60 UNITS UNDER THE SKIN NIGHTLY
     Route: 058
  15. DIFLUCAN [Concomitant]
     Active Substance: FLUCONAZOLE
     Indication: Product used for unknown indication
     Dosage: ONCE
     Route: 048
  16. GLUCOTROL [Concomitant]
     Active Substance: GLIPIZIDE
     Indication: Product used for unknown indication
  17. HYGROTON [Concomitant]
     Active Substance: CHLORTHALIDONE
     Indication: Product used for unknown indication
  18. CALAN [Concomitant]
     Active Substance: VERAPAMIL HYDROCHLORIDE
     Indication: Product used for unknown indication
     Dosage: CR
     Route: 048
  19. DOXYCLINE [DOXYCYCLINE HYCLATE] [Concomitant]
     Indication: Product used for unknown indication
     Route: 048
  20. METFORMIN [Concomitant]
     Active Substance: METFORMIN HYDROCHLORIDE
     Indication: Product used for unknown indication
     Route: 048

REACTIONS (2)
  - Fournier^s gangrene [Recovered/Resolved]
  - Sepsis [Recovered/Resolved]

NARRATIVE: CASE EVENT DATE: 20200711
